FAERS Safety Report 4390078-6 (Version None)
Quarter: 2004Q3

REPORT INFORMATION
  Report Type: 
  Country: None (occurrence: None)
  Receive Date: 20040706
  Receipt Date: 20040623
  Transmission Date: 20050211
  Serious: Yes (Death, Other)
  Sender: FDA-Public Use
  Company Number: JP-BRISTOL-MYERS SQUIBB COMPANY-12629317

PATIENT
  Age: 71 Year
  Sex: Male

DRUGS (5)
  1. GATIFLO TABS [Suspect]
     Indication: INFECTION
     Route: 048
     Dates: start: 20040531, end: 20040603
  2. FLUCAM [Concomitant]
  3. RHYTHMY [Concomitant]
  4. LAXOBERON [Concomitant]
  5. ENSURE [Concomitant]
     Dosage: DOSAGE FORM = BAGS
     Dates: start: 20040603

REACTIONS (2)
  - DEATH [None]
  - HYPERGLYCAEMIA [None]
